FAERS Safety Report 8049727-3 (Version None)
Quarter: 2012Q1

REPORT INFORMATION
  Report Type: 
  Country: None (occurrence: None)
  Receive Date: 20120117
  Receipt Date: 20120105
  Transmission Date: 20120608
  Serious: Yes (Hospitalization)
  Sender: FDA-Public Use
  Company Number: FR-GLAXOSMITHKLINE-B0774938A

PATIENT
  Sex: Female
  Weight: 65 kg

DRUGS (2)
  1. PAZOPANIB [Suspect]
     Indication: NEOPLASM
     Dosage: 600MG PER DAY
     Route: 048
     Dates: start: 20111207
  2. BEVACIZUMAB [Suspect]
     Indication: NEOPLASM
     Dosage: 7.5MGK PER DAY
     Route: 065
     Dates: start: 20111221

REACTIONS (2)
  - PYREXIA [None]
  - THROMBOCYTOPENIA [None]
